FAERS Safety Report 7032444-6 (Version None)
Quarter: 2010Q4

REPORT INFORMATION
  Report Type: 
  Country: None (occurrence: None)
  Receive Date: 20101007
  Receipt Date: 20100322
  Transmission Date: 20110411
  Serious: Yes (Death, Hospitalization)
  Sender: FDA-Public Use
  Company Number: GB-BRISTOL-MYERS SQUIBB COMPANY-15030166

PATIENT
  Age: 78 Year
  Sex: Male
  Weight: 69 kg

DRUGS (3)
  1. CETUXIMAB [Suspect]
     Indication: COLORECTAL CANCER
     Dosage: STRENGTH:5 MG/ML REC INF: 16FEB2010
     Route: 042
     Dates: start: 20091215, end: 20100216
  2. OXALIPLATIN [Suspect]
     Indication: COLORECTAL CANCER
     Dosage: REC INF: 9FEB2010
     Route: 042
     Dates: start: 20091215, end: 20100209
  3. FLUOROURACIL [Suspect]
     Indication: COLORECTAL CANCER
     Dosage: 4400MG(IV NOS)15DEC09 TO 09FEB10 REC INF: 9FEB2010 15DEC09-09FEB10(56D) 15DEC09-09FEB10(56D)
     Route: 040
     Dates: start: 20091215, end: 20100209

REACTIONS (1)
  - INTESTINAL OBSTRUCTION [None]
